FAERS Safety Report 16530551 (Version 1)
Quarter: 2019Q3

REPORT INFORMATION
  Report Type: Spontaneous
  Country: US (occurrence: US)
  Receive Date: 20190704
  Receipt Date: 20190704
  Transmission Date: 20191004
  Serious: Yes (Hospitalization)
  Sender: FDA-Public Use
  Company Number: US-ORPHAN EUROPE-2070355

PATIENT
  Age: 85 Year
  Sex: Female

DRUGS (2)
  1. CYSTADANE [Suspect]
     Active Substance: BETAINE
     Indication: PRODUCT USED FOR UNKNOWN INDICATION
     Route: 048
     Dates: start: 20190418
  2. CYSTADANE [Suspect]
     Active Substance: BETAINE
     Route: 048

REACTIONS (2)
  - Treatment noncompliance [Unknown]
  - Gastric infection [Unknown]

NARRATIVE: CASE EVENT DATE: 20190619
